FAERS Safety Report 7194204-5 (Version None)
Quarter: 2010Q4

REPORT INFORMATION
  Report Type: 
  Country: None (occurrence: None)
  Receive Date: 20101223
  Receipt Date: 20101220
  Transmission Date: 20110411
  Serious: Yes (Other)
  Sender: FDA-Public Use
  Company Number: US-AMGEN-USASP2010010589

PATIENT

DRUGS (3)
  1. NPLATE [Suspect]
     Indication: IDIOPATHIC THROMBOCYTOPENIC PURPURA
     Dosage: 740 A?G, UNK
     Dates: start: 20100101, end: 20100827
  2. CORTICOSTEROIDS [Concomitant]
     Dosage: UNK
     Dates: start: 20100422
  3. IMMUNOGLOBULINS [Concomitant]
     Dosage: UNK
     Route: 042
     Dates: start: 20100428

REACTIONS (2)
  - BONE MARROW RETICULIN FIBROSIS [None]
  - THERAPEUTIC RESPONSE DECREASED [None]
